FAERS Safety Report 21691483 (Version 1)
Quarter: 2022Q4

REPORT INFORMATION
  Report Type: Other
  Country: GB (occurrence: GB)
  Receive Date: 20221207
  Receipt Date: 20221207
  Transmission Date: 20230113
  Serious: Yes (Hospitalization, Other)
  Sender: FDA-Public Use
  Company Number: GB-MHRA-MED-202211281349169830-MZJKV

PATIENT

DRUGS (1)
  1. METFORMIN [Suspect]
     Active Substance: METFORMIN HYDROCHLORIDE
     Indication: Product used for unknown indication
     Dosage: UNK
     Route: 065
     Dates: start: 20120712, end: 20221116

REACTIONS (4)
  - Lactic acidosis [Unknown]
  - Acute kidney injury [Unknown]
  - Cough [Unknown]
  - Rhinitis [Unknown]

NARRATIVE: CASE EVENT DATE: 20221112
